FAERS Safety Report 8848875 (Version 1)
Quarter: 2012Q4

REPORT INFORMATION
  Report Type: Spontaneous
  Country: US (occurrence: None)
  Receive Date: 20121017
  Receipt Date: 20121017
  Transmission Date: 20130627
  Serious: Yes (Life-Threatening, Hospitalization)
  Sender: FDA-Public Use
  Company Number: None

PATIENT
  Age: 46 Year
  Sex: Male
  Weight: 116.58 kg

DRUGS (2)
  1. RIBASPHERE [Suspect]
     Indication: HEPATITIS C
     Dosage: 600 mg by mouth in am and 800 mg in pm
     Route: 048
     Dates: start: 20120925
  2. RIBASPHERE [Suspect]
     Indication: HEPATITIS C

REACTIONS (6)
  - Dyspnoea [None]
  - Blood sodium decreased [None]
  - Fatigue [None]
  - Insomnia [None]
  - Pneumonia [None]
  - Haemoptysis [None]
